FAERS Safety Report 12793750 (Version 1)
Quarter: 2016Q3

REPORT INFORMATION
  Report Type: Spontaneous
  Country: US (occurrence: US)
  Receive Date: 20160929
  Receipt Date: 20160929
  Transmission Date: 20161109
  Serious: No
  Sender: FDA-Public Use
  Company Number: US-JAZZ-2016-US-011726

PATIENT
  Sex: Female

DRUGS (15)
  1. XYREM [Suspect]
     Active Substance: SODIUM OXYBATE
     Dosage: DOSE ADJUSTMENTS
     Route: 048
     Dates: start: 201601, end: 201601
  2. ESTRADIOL. [Concomitant]
     Active Substance: ESTRADIOL
  3. ROZEREM [Concomitant]
     Active Substance: RAMELTEON
  4. XYREM [Suspect]
     Active Substance: SODIUM OXYBATE
     Dosage: 3 G, BID
     Route: 048
     Dates: start: 2016
  5. ATENOLOL. [Concomitant]
     Active Substance: ATENOLOL
  6. CALCIUM [Concomitant]
     Active Substance: CALCIUM
  7. PROGESTERONE. [Concomitant]
     Active Substance: PROGESTERONE
  8. ARMOUR THYROID [Concomitant]
     Active Substance: THYROID, PORCINE
  9. VITAMIN D [Concomitant]
     Active Substance: CHOLECALCIFEROL
  10. CENTRUM [Concomitant]
     Active Substance: VITAMINS
  11. XYREM [Suspect]
     Active Substance: SODIUM OXYBATE
     Indication: SOMNOLENCE
     Dosage: 2.25 G, BID
     Route: 048
     Dates: start: 201512, end: 201601
  12. AMLODIPINE BESYLATE. [Concomitant]
     Active Substance: AMLODIPINE BESYLATE
  13. XYREM [Suspect]
     Active Substance: SODIUM OXYBATE
     Dosage: 4.5 G, BID
     Route: 048
     Dates: start: 201601, end: 2016
  14. ZANAFLEX [Concomitant]
     Active Substance: TIZANIDINE HYDROCHLORIDE
  15. LEXAPRO [Concomitant]
     Active Substance: ESCITALOPRAM OXALATE

REACTIONS (1)
  - Tremor [Recovering/Resolving]
